FAERS Safety Report 9887770 (Version 1)
Quarter: 2014Q1

REPORT INFORMATION
  Report Type: Spontaneous
  Country: CH (occurrence: CH)
  Receive Date: 20140211
  Receipt Date: 20140211
  Transmission Date: 20141002
  Serious: Yes (Hospitalization)
  Sender: FDA-Public Use
  Company Number: PHHY2014CH014229

PATIENT
  Age: 28 Year
  Sex: Male
  Weight: 74 kg

DRUGS (6)
  1. FOCALIN XR [Suspect]
     Indication: ATTENTION DEFICIT/HYPERACTIVITY DISORDER
     Dosage: 10 MG, QD
     Route: 048
     Dates: start: 20131001
  2. RITALIN [Suspect]
     Indication: ATTENTION DEFICIT/HYPERACTIVITY DISORDER
     Dosage: 10 MG, PRN (AS NEEDED EVERY 3 DAYS)
     Route: 048
     Dates: start: 2010
  3. ATARAX                                  /CAN/ [Concomitant]
     Indication: ANXIETY DISORDER
     Dosage: 25 MG, QW
     Route: 048
     Dates: start: 20131101
  4. CIALIS [Concomitant]
     Dosage: UNK UKN, UNK
     Route: 048
     Dates: start: 20131101, end: 20131101
  5. XANAX [Concomitant]
     Indication: ANXIETY DISORDER
     Dosage: 0.25 MG, QW
     Route: 048
     Dates: start: 20131101
  6. CANNABIS [Concomitant]
     Dosage: UNK UKN, UNK
     Dates: end: 2013

REACTIONS (2)
  - Hemiplegia [Recovering/Resolving]
  - Cerebral infarction [Recovering/Resolving]
